FAERS Safety Report 6637162-1 (Version None)
Quarter: 2010Q1

REPORT INFORMATION
  Report Type: 
  Country: None (occurrence: None)
  Receive Date: 20100316
  Receipt Date: 20100205
  Transmission Date: 20100710
  Serious: No
  Sender: FDA-Public Use
  Company Number: US-ABBOTT-09P-163-0599659-00

PATIENT
  Age: 50 Year
  Sex: Female
  Weight: 108.51 kg

DRUGS (2)
  1. TRILIPIX [Suspect]
     Indication: HYPERTRIGLYCERIDAEMIA
     Dosage: EVERY 24 HOURS
     Route: 048
     Dates: start: 20090622, end: 20090921
  2. CRESTOR [Suspect]
     Indication: BLOOD TRIGLYCERIDES INCREASED
     Dates: start: 20090323

REACTIONS (2)
  - GLOMERULAR FILTRATION RATE DECREASED [None]
  - UNEVALUABLE EVENT [None]
